FAERS Safety Report 23522339 (Version 7)
Quarter: 2024Q1

REPORT INFORMATION
  Report Type: Spontaneous
  Country: US (occurrence: US)
  Receive Date: 20240214
  Receipt Date: 20240328
  Transmission Date: 20240410
  Serious: No
  Sender: FDA-Public Use
  Company Number: US-PFIZER INC-PV202300163227

PATIENT
  Age: 10 Year
  Sex: Male
  Weight: 31.75 kg

DRUGS (1)
  1. GENOTROPIN [Suspect]
     Active Substance: SOMATROPIN
     Indication: Short stature
     Dosage: 1.4 MG, DAILY

REACTIONS (4)
  - Contusion [Unknown]
  - Drug dose omission by device [Unknown]
  - Device difficult to use [Unknown]
  - Device malfunction [Unknown]
